FAERS Safety Report 7977923-X (Version None)
Quarter: 2011Q4

REPORT INFORMATION
  Report Type: 
  Country: None (occurrence: None)
  Receive Date: 20111214
  Receipt Date: 20111205
  Transmission Date: 20120403
  Serious: Yes (Hospitalization)
  Sender: FDA-Public Use
  Company Number: US-BIOGENIDEC-2011BI005687

PATIENT
  Age: 58 Year
  Sex: Female

DRUGS (2)
  1. AVONEX [Suspect]
     Indication: MULTIPLE SCLEROSIS
     Route: 030
     Dates: start: 19990301, end: 20101130
  2. AVONEX [Suspect]
     Route: 030

REACTIONS (8)
  - HEADACHE [None]
  - ARTHROPATHY [None]
  - FEMUR FRACTURE [None]
  - KNEE ARTHROPLASTY [None]
  - ABASIA [None]
  - FATIGUE [None]
  - FALL [None]
  - INFECTION [None]
